FAERS Safety Report 5867056-0 (Version None)
Quarter: 2008Q3

REPORT INFORMATION
  Report Type: 
  Country: None (occurrence: None)
  Receive Date: 20080902
  Receipt Date: 20080829
  Transmission Date: 20090109
  Serious: Yes (Other)
  Sender: FDA-Public Use
  Company Number: B0531737A

PATIENT
  Age: 46 Year
  Sex: Female
  Weight: 48 kg

DRUGS (11)
  1. SERETIDE [Suspect]
     Indication: ASTHMA
     Dosage: 500MCG TWICE PER DAY
     Route: 055
     Dates: start: 20080623, end: 20080703
  2. POVIDONE IODINE [Suspect]
     Indication: PHARYNGITIS
     Route: 002
     Dates: start: 20080623, end: 20080703
  3. CODEINE PHOSPHATE [Suspect]
     Indication: DRUG USE FOR UNKNOWN INDICATION
     Dosage: 2G THREE TIMES PER DAY
     Route: 065
  4. CLARITHROMYCIN [Concomitant]
     Indication: COUGH
     Dosage: 400MG PER DAY
     Route: 048
     Dates: start: 20080523, end: 20080708
  5. SINGULAIR [Concomitant]
     Indication: ASTHMA
     Dosage: 10MG PER DAY
     Route: 048
     Dates: start: 20080623, end: 20080708
  6. SULTANOL [Concomitant]
     Indication: ASTHMA
     Route: 055
     Dates: start: 20080623, end: 20080703
  7. ALLEGRA [Concomitant]
  8. BANAN [Concomitant]
  9. THEO SLOW [Concomitant]
  10. SOLANAX [Concomitant]
  11. PULMICORT-100 [Concomitant]

REACTIONS (16)
  - ASTHMA [None]
  - BACK PAIN [None]
  - BONE DENSITY DECREASED [None]
  - BRONCHOSPASM [None]
  - CHEST DISCOMFORT [None]
  - COUGH [None]
  - DIARRHOEA [None]
  - DRUG HYPERSENSITIVITY [None]
  - DYSPNOEA [None]
  - INCREASED VISCOSITY OF BRONCHIAL SECRETION [None]
  - OROPHARYNGEAL DISCOMFORT [None]
  - OROPHARYNGEAL PAIN [None]
  - PALPITATIONS [None]
  - PRODUCTIVE COUGH [None]
  - PYREXIA [None]
  - SNORING [None]
